FAERS Safety Report 24605767 (Version 2)
Quarter: 2024Q4

REPORT INFORMATION
  Report Type: Report from Study
  Country: BE (occurrence: BE)
  Receive Date: 20241111
  Receipt Date: 20241127
  Transmission Date: 20250114
  Serious: Yes (Other)
  Sender: ABBVIE
  Company Number: BE-ABBVIE-5991810

PATIENT
  Sex: Male
  Weight: 75 kg

DRUGS (7)
  1. CARBIDOPA\LEVODOPA [Suspect]
     Active Substance: CARBIDOPA\LEVODOPA
     Indication: Parkinson^s disease
     Dosage: MD: 6.0ML, CD: 3.3ML/H, ED: 2.50ML, DURING 16 HOURS
     Route: 050
     Dates: start: 20240909
  2. CARBIDOPA\LEVODOPA [Suspect]
     Active Substance: CARBIDOPA\LEVODOPA
     Dosage: MD: 8.0ML, CD: 2.4ML/H, ED: 3.00ML, DURING 16 HOURS
     Route: 050
     Dates: start: 20240408, end: 20240419
  3. CARBIDOPA\LEVODOPA [Suspect]
     Active Substance: CARBIDOPA\LEVODOPA
     Dosage: MD: 6.0ML, CD: 3.5ML/H, ED: 2.50ML, DURING 16 HOURS
     Route: 050
     Dates: start: 20240808, end: 20240902
  4. CARBIDOPA\LEVODOPA [Suspect]
     Active Substance: CARBIDOPA\LEVODOPA
     Dosage: MD: 6.0ML, CD: 3.3ML/H, ED: 2.50ML, DURING 16 HOURS
     Route: 050
     Dates: start: 20240902, end: 20240909
  5. CARBIDOPA\LEVODOPA [Suspect]
     Active Substance: CARBIDOPA\LEVODOPA
     Route: 050
     Dates: start: 20230626
  6. CARBIDOPA\LEVODOPA [Suspect]
     Active Substance: CARBIDOPA\LEVODOPA
     Dosage: MD: 8.0ML, CD: 2.7ML/H, ED: 3.00ML, DURING 16 HOURS
     Route: 050
     Dates: start: 20240419, end: 20240808
  7. CARBIDOPA\LEVODOPA [Suspect]
     Active Substance: CARBIDOPA\LEVODOPA
     Dosage: MD: 8.0ML, CD: 2.1ML/H, ED: 3.00ML, DURING 16 HOURS
     Route: 050
     Dates: start: 20240322, end: 20240408

REACTIONS (4)
  - Polyradiculoneuropathy [Not Recovered/Not Resolved]
  - Burning sensation [Unknown]
  - Sensory disturbance [Not Recovered/Not Resolved]
  - Peripheral sensory neuropathy [Unknown]

NARRATIVE: CASE EVENT DATE: 20240801
